FAERS Safety Report 13145572 (Version 1)
Quarter: 2017Q1

REPORT INFORMATION
  Report Type: Spontaneous
  Country: US (occurrence: US)
  Receive Date: 20170124
  Receipt Date: 20170124
  Transmission Date: 20170428
  Serious: Yes (Other)
  Sender: FDA-Public Use
  Company Number: US-ALLERGAN-1702608US

PATIENT
  Age: 74 Year
  Sex: Female
  Weight: 58.96 kg

DRUGS (2)
  1. ARMOUR THYROID [Suspect]
     Active Substance: THYROID, PORCINE
     Indication: THYROID ATROPHY
  2. ARMOUR THYROID [Suspect]
     Active Substance: THYROID, PORCINE
     Indication: GOITRE
     Dosage: 15 MG, QD
     Route: 048

REACTIONS (9)
  - Chest pain [Not Recovered/Not Resolved]
  - Stress [Not Recovered/Not Resolved]
  - Chest discomfort [Not Recovered/Not Resolved]
  - Exposure to radiation [Unknown]
  - Breast cancer [Recovered/Resolved]
  - Anger [Not Recovered/Not Resolved]
  - Blood pressure increased [Not Recovered/Not Resolved]
  - Memory impairment [Unknown]
  - Endometrial cancer [Recovered/Resolved]

NARRATIVE: CASE EVENT DATE: 2016
